FAERS Safety Report 4807880-6 (Version None)
Quarter: 2005Q4

REPORT INFORMATION
  Report Type: 
  Country: None (occurrence: None)
  Receive Date: 20051020
  Receipt Date: 20051014
  Transmission Date: 20060501
  Serious: Yes (Hospitalization, Other)
  Sender: FDA-Public Use
  Company Number: ENTC2005-0308

PATIENT
  Age: 70 Year
  Sex: Male

DRUGS (2)
  1. STALEVO 100 [Suspect]
     Indication: PARKINSON'S DISEASE
     Dosage: 50/12.5/200 MG, ORAL
     Route: 048
     Dates: start: 20050101, end: 20050401
  2. LITHIUM [Concomitant]

REACTIONS (6)
  - DYSPHAGIA [None]
  - HAEMORRHAGE [None]
  - MENTAL DISORDER [None]
  - PROCEDURAL COMPLICATION [None]
  - PSYCHOMOTOR HYPERACTIVITY [None]
  - TARDIVE DYSKINESIA [None]
